FAERS Safety Report 4355552-7 (Version None)
Quarter: 2004Q2

REPORT INFORMATION
  Report Type: 
  Country: None (occurrence: None)
  Receive Date: 20040505
  Receipt Date: 20030411
  Transmission Date: 20050107
  Serious: No
  Sender: FDA-Public Use
  Company Number: 10030028-C572511-1

PATIENT
  Age: 23 Year
  Sex: Female

DRUGS (1)
  1. LACTATED RINGER'S [Suspect]
     Dosage: CONTINUOUS, INTRAVENOUS
     Route: 042
     Dates: start: 20030411

REACTIONS (1)
  - RASH [None]
